FAERS Safety Report 7994733-8 (Version None)
Quarter: 2011Q4

REPORT INFORMATION
  Report Type: 
  Country: None (occurrence: None)
  Receive Date: 20111220
  Receipt Date: 20111213
  Transmission Date: 20120403
  Serious: Yes (Hospitalization, Other)
  Sender: FDA-Public Use
  Company Number: US-JNJFOC-20110810882

PATIENT
  Sex: Male

DRUGS (11)
  1. LEVAQUIN [Suspect]
     Indication: SUBCUTANEOUS ABSCESS
     Route: 048
     Dates: start: 20090201
  2. LEVAQUIN [Suspect]
     Route: 048
     Dates: start: 20070901
  3. LEVAQUIN [Suspect]
     Indication: SKIN LESION
     Route: 048
     Dates: start: 20090201
  4. LEVAQUIN [Suspect]
     Indication: BRONCHITIS
     Route: 048
     Dates: start: 20090201
  5. LEVAQUIN [Suspect]
     Indication: BACTERIAL INFECTION
     Route: 048
     Dates: start: 20090201
  6. LEVAQUIN [Suspect]
     Route: 048
     Dates: start: 20070901
  7. PREDNISONE [Suspect]
     Indication: INFLAMMATION
     Route: 065
  8. CIPROFLOXACIN [Suspect]
     Indication: RESPIRATORY TRACT CONGESTION
     Route: 065
  9. LEVAQUIN [Suspect]
     Route: 048
     Dates: start: 20070901
  10. LEVAQUIN [Suspect]
     Route: 048
     Dates: start: 20070901
  11. CIPROFLOXACIN [Suspect]
     Indication: PROSTATIC SPECIFIC ANTIGEN INCREASED
     Route: 065

REACTIONS (2)
  - ROTATOR CUFF SYNDROME [None]
  - TENDON RUPTURE [None]
